FAERS Safety Report 6346752-5 (Version None)
Quarter: 2009Q3

REPORT INFORMATION
  Report Type: 
  Country: None (occurrence: None)
  Receive Date: 20090904
  Receipt Date: 20090820
  Transmission Date: 20100115
  Serious: Yes (Other)
  Sender: FDA-Public Use
  Company Number: 2009002528

PATIENT
  Age: 61 Year
  Sex: Male

DRUGS (6)
  1. ERLOTINIB HYDROCHLORIDE [Suspect]
     Indication: LUNG ADENOCARCINOMA
     Dosage: (150 MG, QD), ORAL
     Route: 048
     Dates: start: 20081208, end: 20090518
  2. LANSOPRAZOLE [Concomitant]
  3. PREDNISOLONE [Concomitant]
  4. MUCOSTA (REBAMIPIDE) [Concomitant]
  5. CLARITHROMYCIN [Concomitant]
  6. CODEINE PHOSPHATE (CODEINE PHOSPHATE) [Concomitant]

REACTIONS (1)
  - SKIN ULCER [None]
